FAERS Safety Report 17581432 (Version 1)
Quarter: 2020Q1

REPORT INFORMATION
  Report Type: Spontaneous
  Country: US (occurrence: US)
  Receive Date: 20200325
  Receipt Date: 20200325
  Transmission Date: 20200409
  Serious: Yes (Hospitalization, Other)
  Sender: FDA-Public Use
  Company Number: US-ELI_LILLY_AND_COMPANY-US202003007409

PATIENT
  Sex: Female

DRUGS (1)
  1. INSULIN LISPRO [Suspect]
     Active Substance: INSULIN LISPRO
     Indication: DIABETES MELLITUS
     Dosage: 8 U, UNKNOWN
     Route: 058

REACTIONS (4)
  - Chronic obstructive pulmonary disease [Recovering/Resolving]
  - Cerebral disorder [Recovering/Resolving]
  - Asthenia [Recovering/Resolving]
  - Sepsis [Recovering/Resolving]
